FAERS Safety Report 7778506-7 (Version None)
Quarter: 2011Q3

REPORT INFORMATION
  Report Type: 
  Country: None (occurrence: None)
  Receive Date: 20110926
  Receipt Date: 20110914
  Transmission Date: 20111222
  Serious: Yes (Other)
  Sender: FDA-Public Use
  Company Number: CA-BRISTOL-MYERS SQUIBB COMPANY-15983281

PATIENT
  Age: 71 Year
  Sex: Female

DRUGS (2)
  1. ORENCIA [Suspect]
     Indication: RHEUMATOID ARTHRITIS
     Dosage: 7TH ON 09AUG11.6OCT10,22OCT10,17NOV10,RESTARTED ON 8JUN11, 07JUL11.LAST INFUSION WAS ON 9AUG11
     Route: 042
     Dates: start: 20100922, end: 20110809
  2. TYLENOL W/ CODEINE NO. 3 [Concomitant]

REACTIONS (3)
  - VIITH NERVE PARALYSIS [None]
  - HYPOAESTHESIA [None]
  - OEDEMA PERIPHERAL [None]
